FAERS Safety Report 9705376 (Version 1)
Quarter: 2013Q4

REPORT INFORMATION
  Report Type: Spontaneous
  Country: US (occurrence: US)
  Receive Date: 20131122
  Receipt Date: 20131122
  Transmission Date: 20140711
  Serious: No
  Sender: FDA-Public Use
  Company Number: US-TEVA-443447USA

PATIENT
  Sex: Female

DRUGS (3)
  1. COPAXONE [Suspect]
  2. BETASERON [Suspect]
  3. AVONEX [Concomitant]

REACTIONS (2)
  - Influenza like illness [Recovered/Resolved]
  - Injection site reaction [Unknown]
